FAERS Safety Report 5734428-4 (Version None)
Quarter: 2008Q2

REPORT INFORMATION
  Report Type: 
  Country: None (occurrence: None)
  Receive Date: 20080508
  Receipt Date: 20080508
  Transmission Date: 20081010
  Serious: No
  Sender: FDA-Public Use
  Company Number: None

PATIENT
  Age: 38 Year
  Sex: Female
  Weight: 79.3795 kg

DRUGS (1)
  1. CREST PROHEALTH P+G [Suspect]
     Indication: DENTAL CARE
     Dosage: 1 CAP FULL DAILY PO
     Route: 048
     Dates: start: 20071214, end: 20071217

REACTIONS (1)
  - DYSGEUSIA [None]
